FAERS Safety Report 12731669 (Version 1)
Quarter: 2016Q3

REPORT INFORMATION
  Report Type: Spontaneous
  Country: GB (occurrence: GB)
  Receive Date: 20160912
  Receipt Date: 20160912
  Transmission Date: 20161109
  Serious: Yes (Hospitalization)
  Sender: FDA-Public Use
  Company Number: GB-AUROBINDO-AUR-APL-2016-11127

PATIENT
  Age: 60 Year

DRUGS (2)
  1. CLARITHROMYCIN 500MG [Suspect]
     Active Substance: CLARITHROMYCIN
     Indication: TOOTH ABSCESS
     Dosage: 500 MG, TWO TIMES A DAY
     Route: 065
  2. CARBAMAZEPINE. [Suspect]
     Active Substance: CARBAMAZEPINE
     Indication: EPILEPSY
     Dosage: MODIFIED RELEASE 400MG IN THE MORNING AND 600MG AT NIGHT.
     Route: 065

REACTIONS (9)
  - Disorientation [Unknown]
  - Vertigo [Unknown]
  - Drug level increased [Unknown]
  - Dizziness [Unknown]
  - Somnolence [Unknown]
  - Diplopia [Unknown]
  - Labelled drug-drug interaction medication error [Unknown]
  - Vision blurred [Unknown]
  - Dysarthria [Unknown]

NARRATIVE: CASE EVENT DATE: 20151117
